FAERS Safety Report 10100120 (Version 1)
Quarter: 2014Q2

REPORT INFORMATION
  Report Type: Spontaneous
  Country: US (occurrence: US)
  Receive Date: 20140423
  Receipt Date: 20140423
  Transmission Date: 20141212
  Serious: No
  Sender: FDA-Public Use
  Company Number: US-GILEAD-2013-0075144

PATIENT
  Sex: Male

DRUGS (1)
  1. LETAIRIS [Suspect]
     Indication: PRODUCT USED FOR UNKNOWN INDICATION
     Route: 048
     Dates: start: 20130426

REACTIONS (4)
  - Insomnia [Recovering/Resolving]
  - Decreased appetite [Recovering/Resolving]
  - Dyspnoea [Recovering/Resolving]
  - Constipation [Recovering/Resolving]
